FAERS Safety Report 24329110 (Version 4)
Quarter: 2024Q4

REPORT INFORMATION
  Report Type: Other
  Country: US (occurrence: US)
  Receive Date: 20240917
  Receipt Date: 20241125
  Transmission Date: 20250114
  Serious: Yes (Hospitalization, Other)
  Sender: TRAVERE THERAPEUTICS
  Company Number: US-TRAVERE-2024TVT00855

PATIENT
  Age: 54 Year
  Sex: Male

DRUGS (2)
  1. FILSPARI [Suspect]
     Active Substance: SPARSENTAN
     Indication: IgA nephropathy
     Route: 048
     Dates: start: 20240611
  2. FILSPARI [Suspect]
     Active Substance: SPARSENTAN
     Route: 048
     Dates: start: 20241016

REACTIONS (5)
  - Hepatic cirrhosis [Unknown]
  - Adverse event [Unknown]
  - Pruritus [Unknown]
  - Abdominal pain [Unknown]
  - Back pain [Unknown]
